FAERS Safety Report 13352079 (Version 1)
Quarter: 2017Q1

REPORT INFORMATION
  Report Type: Spontaneous
  Country: US (occurrence: US)
  Receive Date: 20170320
  Receipt Date: 20170320
  Transmission Date: 20170429
  Serious: No
  Sender: FDA-Public Use
  Company Number: US-SA-2016SA105931

PATIENT
  Age: 43 Year
  Sex: Female
  Weight: 72 kg

DRUGS (1)
  1. NASACORT ALLERGY 24HR [Suspect]
     Active Substance: TRIAMCINOLONE ACETONIDE
     Dosage: MORNING ON BOTH DAYS.
     Route: 065
     Dates: start: 20160526, end: 20160528

REACTIONS (6)
  - Rash generalised [Recovered/Resolved]
  - Eye pain [Recovered/Resolved]
  - Pruritus [Recovered/Resolved]
  - Urticaria [Recovered/Resolved]
  - Eye disorder [Recovered/Resolved]
  - Feeling abnormal [Recovered/Resolved]
